FAERS Safety Report 25653155 (Version 1)
Quarter: 2025Q3

REPORT INFORMATION
  Report Type: Spontaneous
  Country: EU (occurrence: EU)
  Receive Date: 20250807
  Receipt Date: 20250807
  Transmission Date: 20251021
  Serious: Yes (Hospitalization)
  Sender: ACCORD
  Company Number: None

PATIENT
  Age: 56 Year
  Sex: Male
  Weight: 138 kg

DRUGS (20)
  1. ATORVASTATIN [Suspect]
     Active Substance: ATORVASTATIN
     Indication: Dyslipidaemia
  2. REPAGLINIDE [Suspect]
     Active Substance: REPAGLINIDE
     Indication: Insulin-requiring type 2 diabetes mellitus
     Dates: end: 20250626
  3. ACETAMINOPHEN [Suspect]
     Active Substance: ACETAMINOPHEN
     Indication: Pain
  4. SILDENAFIL CITRATE [Suspect]
     Active Substance: SILDENAFIL CITRATE
     Indication: Product used for unknown indication
  5. PREDNISONE [Suspect]
     Active Substance: PREDNISONE
     Indication: Retinal detachment
     Dates: start: 20250613, end: 20250618
  6. DIAMOX SEQUELS [Suspect]
     Active Substance: ACETAZOLAMIDE
     Indication: Product used for unknown indication
     Dosage: STRENGTH: 250 MG, SCORED TABLET
     Dates: start: 20250619, end: 20250628
  7. DORZOLAMIDE [Suspect]
     Active Substance: DORZOLAMIDE
     Indication: Retinal detachment
     Dates: start: 20250620, end: 20250622
  8. TIMOLOL [Suspect]
     Active Substance: TIMOLOL
     Indication: Retinal detachment
     Dates: start: 20250620, end: 20250625
  9. ACUPAN [Suspect]
     Active Substance: NEFOPAM HYDROCHLORIDE
     Indication: Pain
     Dates: start: 20250620, end: 20250622
  10. BRIMONIDINE [Suspect]
     Active Substance: BRIMONIDINE TARTRATE
     Indication: Retinal detachment
     Dates: start: 20250620, end: 20250620
  11. TROPICAMIDE [Suspect]
     Active Substance: TROPICAMIDE
     Indication: Retinal detachment
     Dates: start: 20250621, end: 20250622
  12. DEXAMETHASONE SODIUM PHOSPHATE [Suspect]
     Active Substance: DEXAMETHASONE SODIUM PHOSPHATE
     Indication: Retinal detachment
     Dosage: STRENGTH:  1 MG/ML, EYE DROPS, SOLUTION
     Dates: start: 20250621
  13. LOPERAMIDE [Suspect]
     Active Substance: LOPERAMIDE
     Indication: Prophylaxis
  14. HUMALOG [Suspect]
     Active Substance: INSULIN LISPRO
     Indication: Insulin-requiring type 2 diabetes mellitus
     Dates: start: 20250620
  15. MANNITOL [Suspect]
     Active Substance: MANNITOL
     Indication: Product used for unknown indication
     Dates: start: 20250620, end: 20250620
  16. POLYETHYLENE GLYCOL 4000 [Suspect]
     Active Substance: POLYETHYLENE GLYCOL 4000
     Indication: Constipation
     Dates: start: 20250620
  17. METFORMIN PAMOATE [Suspect]
     Active Substance: METFORMIN PAMOATE
     Indication: Insulin-requiring type 2 diabetes mellitus
     Dosage: STRENGTH: 700 MG, SCORED TABLET
  18. INSULIN GLARGINE [Suspect]
     Active Substance: INSULIN GLARGINE
     Indication: Insulin-requiring type 2 diabetes mellitus
     Dosage: STRENGTH: 300 UNITS/ML, SOLUTION FOR INJECTION IN PRE-FILLED PEN
  19. OZEMPIC [Suspect]
     Active Substance: SEMAGLUTIDE
     Indication: Insulin-requiring type 2 diabetes mellitus
     Dosage: STRENGTH: 1 MG, SOLUTION FOR INJECTION IN PRE-FILLED PEN
  20. PREDNISONE [Suspect]
     Active Substance: PREDNISONE
     Indication: Retinal detachment
     Dates: start: 20250619, end: 20250620

REACTIONS (1)
  - Ischaemic stroke [Recovered/Resolved]

NARRATIVE: CASE EVENT DATE: 20250621
